FAERS Safety Report 6492027-3 (Version None)
Quarter: 2009Q4

REPORT INFORMATION
  Report Type: 
  Country: None (occurrence: None)
  Receive Date: 20091208
  Receipt Date: 20091126
  Transmission Date: 20100525
  Serious: Yes (Life-Threatening, Hospitalization)
  Sender: FDA-Public Use
  Company Number: JPI-P-009267

PATIENT
  Age: 37 Year
  Sex: Female

DRUGS (2)
  1. FLUVOXAMINE MALEATE [Suspect]
     Indication: DEPRESSION
     Dosage: (300 MG,1 D),ORAL
     Route: 048
  2. ZOLPIDEM TARTRATE [Suspect]
     Indication: SLEEP DISORDER
     Dosage: (10 MG,1 D)

REACTIONS (2)
  - SOMNAMBULISM [None]
  - SUICIDE ATTEMPT [None]
